FAERS Safety Report 19592020 (Version 1)
Quarter: 2021Q3

REPORT INFORMATION
  Report Type: Spontaneous
  Country: US (occurrence: US)
  Receive Date: 20210722
  Receipt Date: 20210722
  Transmission Date: 20211014
  Serious: No
  Sender: FDA-Public Use
  Company Number: US-AUROBINDO-AUR-APL-2021-003382

PATIENT
  Sex: Female
  Weight: 99.7 kg

DRUGS (1)
  1. ALPRAZOLAM. [Suspect]
     Active Substance: ALPRAZOLAM
     Indication: ANXIETY
     Dosage: 0.5 MILLIGRAM, TWO TIMES A DAY
     Route: 065

REACTIONS (3)
  - Drug ineffective [Unknown]
  - False negative investigation result [Unknown]
  - Product substitution issue [Unknown]
